FAERS Safety Report 16903354 (Version 1)
Quarter: 2019Q4

REPORT INFORMATION
  Report Type: Spontaneous
  Country: US (occurrence: US)
  Receive Date: 20191010
  Receipt Date: 20191010
  Transmission Date: 20200122
  Serious: Yes (Hospitalization)
  Sender: FDA-Public Use
  Company Number: US-MYLANLABS-2019M1094833

PATIENT
  Age: 59 Year
  Sex: Female
  Weight: 46.1 kg

DRUGS (1)
  1. FULPHILA [Suspect]
     Active Substance: PEGFILGRASTIM-JMDB
     Indication: PRODUCT USED FOR UNKNOWN INDICATION
     Dosage: 50 MILLIGRAM
     Dates: start: 20190927

REACTIONS (2)
  - Splenic rupture [Unknown]
  - Infection [Unknown]

NARRATIVE: CASE EVENT DATE: 2019
